FAERS Safety Report 19472168 (Version 1)
Quarter: 2021Q2

REPORT INFORMATION
  Report Type: Spontaneous
  Country: US (occurrence: US)
  Receive Date: 20210629
  Receipt Date: 20210629
  Transmission Date: 20210717
  Serious: Yes (Hospitalization, Other)
  Sender: FDA-Public Use
  Company Number: US-ROCHE-2854824

PATIENT
  Age: 69 Year
  Sex: Male
  Weight: 53.2 kg

DRUGS (16)
  1. LONSURF [Suspect]
     Active Substance: TIPIRACIL HYDROCHLORIDE\TRIFLURIDINE
     Indication: COLON CANCER STAGE IV
  2. BENZONATATE. [Concomitant]
     Active Substance: BENZONATATE
     Route: 048
  3. AVASTIN [Suspect]
     Active Substance: BEVACIZUMAB
     Indication: PRODUCT USED FOR UNKNOWN INDICATION
     Dosage: CYCLE 2
     Route: 065
  4. LIDOCAINE;PRILOCAINE [Concomitant]
     Route: 061
  5. BUPROPION. [Concomitant]
     Active Substance: BUPROPION
  6. LONSURF [Suspect]
     Active Substance: TIPIRACIL HYDROCHLORIDE\TRIFLURIDINE
     Indication: COLON CANCER
     Dosage: CYCLE 1
     Route: 048
     Dates: start: 20201203, end: 20210420
  7. CLINDAMYCIN. [Concomitant]
     Active Substance: CLINDAMYCIN
  8. LORAZEPAM. [Concomitant]
     Active Substance: LORAZEPAM
  9. NEULASTA [Concomitant]
     Active Substance: PEGFILGRASTIM
  10. RESTORIL [Concomitant]
     Active Substance: TEMAZEPAM
     Route: 048
  11. HYDROCODONE POLISTIREX [Concomitant]
     Active Substance: HYDROCODONE POLISTIREX
  12. MARINOL [Concomitant]
     Active Substance: DRONABINOL
  13. ATENOLOL. [Concomitant]
     Active Substance: ATENOLOL
     Route: 048
  14. DRONABINOL. [Concomitant]
     Active Substance: DRONABINOL
     Dosage: (2.5 MG,1 IN 0.5 D)
     Route: 048
  15. XARELTO [Concomitant]
     Active Substance: RIVAROXABAN
     Route: 048
  16. PEGFILGRASTIM [Concomitant]
     Active Substance: PEGFILGRASTIM

REACTIONS (23)
  - Neuropathy peripheral [Unknown]
  - Gout [Unknown]
  - Cough [Unknown]
  - Insomnia [Unknown]
  - Abscess [Unknown]
  - Nausea [Unknown]
  - Hypotension [Recovering/Resolving]
  - Arthralgia [Unknown]
  - Fatigue [Not Recovered/Not Resolved]
  - Weight decreased [Unknown]
  - Anxiety [Unknown]
  - Decreased appetite [Not Recovered/Not Resolved]
  - Thrombocytopenia [Unknown]
  - Thrombocytosis [Unknown]
  - Deep vein thrombosis [Unknown]
  - Pyrexia [Unknown]
  - Anaemia [Unknown]
  - Dyspnoea [Unknown]
  - Ascites [Not Recovered/Not Resolved]
  - Blood bilirubin increased [Unknown]
  - Asthenia [Unknown]
  - Inguinal hernia [Unknown]
  - Diarrhoea [Not Recovered/Not Resolved]

NARRATIVE: CASE EVENT DATE: 20201221
